FAERS Safety Report 24714704 (Version 3)
Quarter: 2025Q1

REPORT INFORMATION
  Report Type: Report from Study
  Country: US (occurrence: US)
  Receive Date: 20241210
  Receipt Date: 20250304
  Transmission Date: 20250408
  Serious: No
  Sender: ACADIA PHARMACEUTICALS
  Company Number: US-ACADIA PHARMACEUTICALS INC.-ACA-2024-PIM-007899

PATIENT
  Sex: Female

DRUGS (24)
  1. NUPLAZID [Suspect]
     Active Substance: PIMAVANSERIN TARTRATE
     Indication: Parkinson^s disease
     Dosage: 34 MILLIGRAM, QD
     Route: 048
     Dates: start: 20241203
  2. AMANTADINE [Concomitant]
     Active Substance: AMANTADINE
  3. ATORVASTATIN [Concomitant]
     Active Substance: ATORVASTATIN
  4. AZILECT [Concomitant]
     Active Substance: RASAGILINE MESYLATE
  5. CALCIUM CITRATE\CHOLECALCIFEROL [Concomitant]
     Active Substance: CALCIUM CITRATE\CHOLECALCIFEROL
  6. COLACE [Concomitant]
     Active Substance: DOCUSATE SODIUM
  7. COMTAN [Concomitant]
     Active Substance: ENTACAPONE
  8. FIBER THERAPY (CALCIUM POLYCARBOPHIL) [Concomitant]
     Active Substance: CALCIUM POLYCARBOPHIL
  9. LAMICTAL [Concomitant]
     Active Substance: LAMOTRIGINE
  10. LEVOTHYROXINE [Concomitant]
     Active Substance: LEVOTHYROXINE
  11. LINZESS [Concomitant]
     Active Substance: LINACLOTIDE
  12. MELATONIN [Concomitant]
     Active Substance: MELATONIN
  13. METHENAMINE HIPPURATE [Concomitant]
     Active Substance: METHENAMINE HIPPURATE
  14. METHENAMINE HIPPURATE [Concomitant]
     Active Substance: METHENAMINE HIPPURATE
  15. PROZAC [Concomitant]
     Active Substance: FLUOXETINE HYDROCHLORIDE
  16. RISEDRONATE SODIUM [Concomitant]
     Active Substance: RISEDRONATE SODIUM
  17. SINEMET [Concomitant]
     Active Substance: CARBIDOPA\LEVODOPA
  18. SINGULAIR [Concomitant]
     Active Substance: MONTELUKAST SODIUM
  19. CALCIUM CARBONATE\MAGNESIUM CARBONATE [Concomitant]
     Active Substance: CALCIUM CARBONATE\MAGNESIUM CARBONATE
  20. TROSPIUM CHLORIDE [Concomitant]
     Active Substance: TROSPIUM CHLORIDE
  21. CHOLECALCIFEROL [Concomitant]
     Active Substance: CHOLECALCIFEROL
  22. WELLBUTRIN [Concomitant]
     Active Substance: BUPROPION HYDROCHLORIDE
  23. ZANTAC [Concomitant]
     Active Substance: RANITIDINE HYDROCHLORIDE
  24. ASPIRIN [Concomitant]
     Active Substance: ASPIRIN

REACTIONS (2)
  - Confusional state [Not Recovered/Not Resolved]
  - Product dose omission issue [Recovered/Resolved]
